FAERS Safety Report 13300032 (Version 2)
Quarter: 2017Q2

REPORT INFORMATION
  Report Type: Spontaneous
  Country: JP (occurrence: JP)
  Receive Date: 20170306
  Receipt Date: 20170403
  Transmission Date: 20170830
  Serious: No
  Sender: FDA-Public Use
  Company Number: JP-AMGEN-JPNSP2017033174

PATIENT
  Age: 86 Year
  Sex: Female

DRUGS (13)
  1. PRALIA [Suspect]
     Active Substance: DENOSUMAB
     Indication: PRODUCT USED FOR UNKNOWN INDICATION
     Dosage: 60 MG, Q6MO
     Route: 058
     Dates: start: 201504
  2. ULTIVA [Concomitant]
     Active Substance: REMIFENTANIL HYDROCHLORIDE
     Dosage: 1/5DF, UNK
     Route: 042
  3. FOSAMAC [Suspect]
     Active Substance: ALENDRONATE SODIUM
     Indication: PRODUCT USED FOR UNKNOWN INDICATION
     Dosage: UNK, QWK
     Route: 048
     Dates: start: 2005
  4. GASMOTIN [Concomitant]
     Active Substance: MOSAPRIDE CITRATE
     Dosage: UNK, TID
     Route: 065
  5. HACHIMIJIOGAN [Concomitant]
     Active Substance: HERBALS
     Dosage: UNK, BID
     Route: 065
  6. EFFORTIL [Concomitant]
     Active Substance: ETILEFRINE HYDROCHLORIDE
     Dosage: UNK
     Route: 042
  7. NEO SYNESIN [Concomitant]
     Active Substance: PHENYLEPHRINE HYDROCHLORIDE
     Dosage: UNK
     Route: 042
  8. OPALMON [Concomitant]
     Active Substance: LIMAPROST
     Dosage: UNK, TID
     Route: 065
  9. CELECOX [Concomitant]
     Active Substance: CELECOXIB
     Dosage: UNK, BID
     Route: 065
  10. REBAMIPIDE [Concomitant]
     Active Substance: REBAMIPIDE
     Dosage: UNK, BID
     Route: 065
  11. DENOTAS [Concomitant]
     Active Substance: CALCIUM CARBONATE\CHOLECALCIFEROL\MAGNESIUM CARBONATE
     Dosage: UNK
     Route: 065
     Dates: start: 201504
  12. EDIROL [Concomitant]
     Active Substance: ELDECALCITOL
     Dosage: 0.75 DF, QD
     Route: 065
     Dates: start: 2005
  13. FENTANYL. [Concomitant]
     Active Substance: FENTANYL
     Dosage: 4 ML, UNK
     Route: 042

REACTIONS (1)
  - Ulna fracture [Recovering/Resolving]

NARRATIVE: CASE EVENT DATE: 201609
